FAERS Safety Report 13366615 (Version 1)
Quarter: 2017Q1

REPORT INFORMATION
  Report Type: Spontaneous
  Country: DE (occurrence: DE)
  Receive Date: 20170323
  Receipt Date: 20170323
  Transmission Date: 20170429
  Serious: Yes (Death, Hospitalization)
  Sender: FDA-Public Use
  Company Number: DE-ABBVIE-17P-062-1910872-00

PATIENT
  Age: 74 Year
  Sex: Female

DRUGS (7)
  1. TORASEMID [Concomitant]
     Active Substance: TORSEMIDE
     Indication: HYPERTENSION
     Route: 048
  2. HUMIRA [Suspect]
     Active Substance: ADALIMUMAB
     Indication: RHEUMATOID ARTHRITIS
     Route: 058
  3. VALSARTAN. [Concomitant]
     Active Substance: VALSARTAN
     Indication: PRODUCT USED FOR UNKNOWN INDICATION
     Route: 048
  4. ASPIRIN. [Concomitant]
     Active Substance: ASPIRIN
     Indication: CAROTID ARTERY STENOSIS
     Route: 048
  5. ALLOPURINOL. [Concomitant]
     Active Substance: ALLOPURINOL
     Indication: HYPERURICAEMIA
     Route: 048
  6. CARVEDILOL. [Concomitant]
     Active Substance: CARVEDILOL
     Indication: HYPERTENSION
     Route: 048
  7. RAMIPRIL. [Concomitant]
     Active Substance: RAMIPRIL
     Indication: HYPERTENSION
     Route: 048

REACTIONS (22)
  - Sepsis [Fatal]
  - Laryngeal inflammation [Fatal]
  - Infectious pleural effusion [Fatal]
  - Necrosis [Fatal]
  - Hyperuricaemia [Unknown]
  - Aspiration [Fatal]
  - Multiple organ dysfunction syndrome [Fatal]
  - Ischaemia [Fatal]
  - Acute kidney injury [Fatal]
  - Pleural fibrosis [Fatal]
  - Gangrene [Fatal]
  - Encephalopathy [Fatal]
  - Tracheitis [Fatal]
  - Procalcitonin decreased [Fatal]
  - Coma [Fatal]
  - Herpes simplex [Fatal]
  - Pharyngitis [Fatal]
  - Dermatitis herpetiformis [Fatal]
  - Hypertension [Unknown]
  - Pneumonia [Fatal]
  - Lower respiratory tract herpes infection [Fatal]
  - Pulmonary necrosis [Fatal]

NARRATIVE: CASE EVENT DATE: 20160420
